FAERS Safety Report 10025829 (Version 1)
Quarter: 2014Q1

REPORT INFORMATION
  Report Type: Spontaneous
  Country: IT (occurrence: IT)
  Receive Date: 20140320
  Receipt Date: 20140320
  Transmission Date: 20141002
  Serious: Yes (Hospitalization)
  Sender: FDA-Public Use
  Company Number: IT-ACTAVIS-2013-25310

PATIENT
  Age: 1 Year
  Sex: Male
  Weight: 13 kg

DRUGS (2)
  1. PARACETAMOL (UNKNOWN) [Suspect]
     Indication: PYREXIA
     Dosage: 250 MG, DAILY
     Route: 054
     Dates: start: 20130628, end: 20130701
  2. AMOXICILLIN-CLAVULANIC ACID [Suspect]
     Indication: INFLUENZA
     Dosage: UNK, UNKNOWN
     Route: 048
     Dates: start: 20130629, end: 20130701

REACTIONS (3)
  - Diarrhoea [Unknown]
  - Rash macular [Unknown]
  - Musculoskeletal pain [Unknown]
